FAERS Safety Report 24686007 (Version 1)
Quarter: 2024Q4

REPORT INFORMATION
  Report Type: Spontaneous
  Country: GB (occurrence: GB)
  Receive Date: 20241202
  Receipt Date: 20241202
  Transmission Date: 20250114
  Serious: Yes (Other)
  Sender: PFIZER
  Company Number: None

PATIENT
  Sex: Female

DRUGS (2)
  1. DEPO-PROVERA [Suspect]
     Active Substance: MEDROXYPROGESTERONE ACETATE
     Indication: Contraception
     Dosage: 150 MG
     Dates: start: 20240304
  2. DEPO-PROVERA [Suspect]
     Active Substance: MEDROXYPROGESTERONE ACETATE
     Indication: Pregnancy test negative

REACTIONS (14)
  - Medication error [Unknown]
  - Chest pain [Not Recovered/Not Resolved]
  - Constipation [Unknown]
  - Headache [Unknown]
  - Abdominal pain upper [Unknown]
  - Oropharyngeal pain [Unknown]
  - Bone pain [Unknown]
  - Muscle fatigue [Unknown]
  - Breast pain [Unknown]
  - Dyspnoea [Unknown]
  - Pain in extremity [Unknown]
  - Paraesthesia [Unknown]
  - Pain of skin [Unknown]
  - Facial pain [Unknown]
